FAERS Safety Report 18969812 (Version 2)
Quarter: 2021Q1

REPORT INFORMATION
  Report Type: Spontaneous
  Country: MA (occurrence: MA)
  Receive Date: 20210304
  Receipt Date: 20210316
  Transmission Date: 20210420
  Serious: Yes (Other)
  Sender: FDA-Public Use
  Company Number: MA-PFIZER INC-2021218761

PATIENT
  Age: 46 Year
  Sex: Male

DRUGS (3)
  1. VORTIOXETINE. [Concomitant]
     Active Substance: VORTIOXETINE
     Indication: DEPRESSION
     Dosage: UNK
     Dates: start: 201911
  2. AZITHROMYCIN ANHYDROUS. [Suspect]
     Active Substance: AZITHROMYCIN ANHYDROUS
     Indication: COVID-19
     Dosage: UNK
     Dates: start: 2020
  3. CHLOROQUINE. [Suspect]
     Active Substance: CHLOROQUINE
     Indication: COVID-19
     Dosage: UNK
     Dates: start: 2020

REACTIONS (7)
  - Insomnia [Recovered/Resolved]
  - Incoherent [Recovered/Resolved]
  - Emotional distress [Recovered/Resolved]
  - Abnormal behaviour [Recovered/Resolved]
  - Off label use [Unknown]
  - Hallucination, visual [Recovered/Resolved]
  - Psychotic symptom [Recovered/Resolved]

NARRATIVE: CASE EVENT DATE: 2020
